FAERS Safety Report 4630189-0 (Version None)
Quarter: 2005Q2

REPORT INFORMATION
  Report Type: 
  Country: None (occurrence: None)
  Receive Date: 20050408
  Receipt Date: 20050329
  Transmission Date: 20051028
  Serious: Yes (Hospitalization)
  Sender: FDA-Public Use
  Company Number: DE-JNJFOC-20050307043

PATIENT
  Sex: Female
  Weight: 48 kg

DRUGS (9)
  1. INFLIXIMAB [Suspect]
     Route: 042
  2. INFLIXIMAB [Suspect]
     Indication: CROHN'S DISEASE
     Route: 042
  3. AZATHIOPRINE [Concomitant]
  4. AZATHIOPRINE [Concomitant]
     Indication: CROHN'S DISEASE
  5. METHYLPREDNISOLONE [Concomitant]
     Indication: CROHN'S DISEASE
  6. MESALAZIN [Concomitant]
     Indication: CROHN'S DISEASE
  7. ONDANSETRON [Concomitant]
     Indication: NAUSEA
  8. BUPRENORPHINE HCL [Concomitant]
     Indication: BACK PAIN
     Route: 062
  9. ESOMEPRAZOL [Concomitant]

REACTIONS (5)
  - HEADACHE [None]
  - NAUSEA [None]
  - VERTIGO [None]
  - VISUAL DISTURBANCE [None]
  - VOMITING [None]
